FAERS Safety Report 6687596-4 (Version None)
Quarter: 2010Q2

REPORT INFORMATION
  Report Type: 
  Country: None (occurrence: None)
  Receive Date: 20100416
  Receipt Date: 20100416
  Transmission Date: 20101027
  Serious: Yes (Other)
  Sender: FDA-Public Use
  Company Number: None

PATIENT
  Sex: Female
  Weight: 97 kg

DRUGS (3)
  1. OXACILLIN [Suspect]
     Indication: ARTHRITIS INFECTIVE
     Dosage: 8GM IN 240ML DAILY IV
     Route: 042
     Dates: start: 20100304
  2. OXACILLIN [Suspect]
     Indication: CARDIAC VALVE VEGETATION
     Dosage: 8GM IN 240ML DAILY IV
     Route: 042
     Dates: start: 20100304
  3. VANCOMYCIN [Suspect]
     Indication: STAPHYLOCOCCAL INFECTION
     Dosage: 2 GM IN 335ML DAILY IV
     Route: 042
     Dates: start: 20100304

REACTIONS (4)
  - DEVICE OCCLUSION [None]
  - INFUSION SITE HAEMORRHAGE [None]
  - MEDICAL DEVICE COMPLICATION [None]
  - PLEURAL EFFUSION [None]
